FAERS Safety Report 7582432-6 (Version None)
Quarter: 2011Q2

REPORT INFORMATION
  Report Type: 
  Country: None (occurrence: None)
  Receive Date: 20110630
  Receipt Date: 20110620
  Transmission Date: 20111010
  Serious: Yes (Hospitalization, Disabling, Other)
  Sender: FDA-Public Use
  Company Number: GB-JNJFOC-20110202343

PATIENT
  Sex: Female

DRUGS (5)
  1. RISPERIDONE [Suspect]
     Indication: PSYCHOTIC DISORDER
     Route: 065
     Dates: start: 19970101, end: 20030101
  2. RISPERIDONE [Suspect]
     Indication: DEPRESSION
     Route: 065
     Dates: start: 20040101, end: 20060101
  3. RISPERIDONE [Suspect]
     Route: 065
     Dates: start: 19970101, end: 20030101
  4. RISPERIDONE [Suspect]
     Route: 065
     Dates: start: 20040101, end: 20060101
  5. QUETIAPINE [Concomitant]
     Indication: ILL-DEFINED DISORDER
     Route: 065

REACTIONS (16)
  - AMNESIA [None]
  - ASTHENOPIA [None]
  - DRUG DEPENDENCE [None]
  - TREATMENT NONCOMPLIANCE [None]
  - HYPOAESTHESIA [None]
  - DYSTONIA [None]
  - CONVERSION DISORDER [None]
  - MYOCARDIAL INFARCTION [None]
  - NONSPECIFIC REACTION [None]
  - SUICIDE ATTEMPT [None]
  - RENAL INJURY [None]
  - LIVER INJURY [None]
  - FEELING ABNORMAL [None]
  - SCIATICA [None]
  - CARDIOMEGALY [None]
  - PSYCHIATRIC SYMPTOM [None]
